FAERS Safety Report 6235520-0 (Version None)
Quarter: 2009Q2

REPORT INFORMATION
  Report Type: 
  Country: None (occurrence: None)
  Receive Date: 20090618
  Receipt Date: 20080730
  Transmission Date: 20091009
  Serious: No
  Sender: FDA-Public Use
  Company Number: US-ASTRAZENECA-2008UW15695

PATIENT
  Sex: Female
  Weight: 81.2 kg

DRUGS (1)
  1. RHINOCORT [Suspect]
     Indication: SEASONAL ALLERGY
     Route: 045

REACTIONS (1)
  - BLOOD PRESSURE INCREASED [None]
